FAERS Safety Report 7843973-7 (Version None)
Quarter: 2011Q4

REPORT INFORMATION
  Report Type: 
  Country: None (occurrence: None)
  Receive Date: 20111025
  Receipt Date: 20111020
  Transmission Date: 20120403
  Serious: Yes (Hospitalization, Other)
  Sender: FDA-Public Use
  Company Number: GXKR2011DE03103

PATIENT

DRUGS (2)
  1. SERTRALINE HYDROCHLORIDE [Suspect]
     Dosage: MATERNAL DOSE: 100 [MG/D ]
     Route: 064
  2. FOLIC ACID [Concomitant]
     Indication: PROPHYLAXIS OF NEURAL TUBE DEFECT
     Route: 064

REACTIONS (7)
  - AGITATION NEONATAL [None]
  - MATERNAL EXPOSURE DURING PREGNANCY [None]
  - SCLERAL HAEMORRHAGE [None]
  - HAEMATOMA [None]
  - CYANOSIS NEONATAL [None]
  - SPINAL DISORDER [None]
  - GROSS MOTOR DELAY [None]
